FAERS Safety Report 13648179 (Version 1)
Quarter: 2017Q2

REPORT INFORMATION
  Report Type: Spontaneous
  Country: CN (occurrence: CN)
  Receive Date: 20170613
  Receipt Date: 20170613
  Transmission Date: 20170830
  Serious: Yes (Disabling)
  Sender: FDA-Public Use
  Company Number: CN-BAYER-2017-107761

PATIENT
  Age: 84 Year
  Sex: Male
  Weight: 50 kg

DRUGS (7)
  1. IMIPENEM [Suspect]
     Active Substance: IMIPENEM
     Indication: ARTERIOSCLEROSIS CORONARY ARTERY
     Dosage: 1 G, TID
     Route: 041
     Dates: start: 20170408, end: 20170410
  2. SODIUM CHLORIDE INJECTION [Concomitant]
     Active Substance: SODIUM CHLORIDE
     Indication: LIVER DISORDER
     Dosage: 250 ML, QD
     Route: 041
     Dates: start: 20170406, end: 20170410
  3. PANTOPRAZOLE [Suspect]
     Active Substance: PANTOPRAZOLE
     Indication: ARTERIOSCLEROSIS CORONARY ARTERY
     Dosage: 42.3 MG, QD
     Route: 041
     Dates: start: 20170408, end: 20170410
  4. CILASTATIN SODIUM [Suspect]
     Active Substance: CILASTATIN SODIUM
     Dosage: UNK
  5. SALVIA MILTIORRHIZA [Suspect]
     Active Substance: HERBALS
     Indication: ARTERIOSCLEROSIS CORONARY ARTERY
     Dosage: 10 ML, QD
     Route: 041
     Dates: start: 20170408, end: 20170410
  6. SODIUM CHLORIDE INJECTION [Concomitant]
     Active Substance: SODIUM CHLORIDE
     Indication: LIVER DISORDER
     Dosage: 100 ML, TID
     Route: 041
     Dates: start: 20170407, end: 20170410
  7. BAYASPIRIN 100 MG [Suspect]
     Active Substance: ASPIRIN
     Indication: ARTERIOSCLEROSIS CORONARY ARTERY
     Dosage: 0.1 G, QD
     Route: 048
     Dates: start: 20170408, end: 20170410

REACTIONS (1)
  - Hepatic function abnormal [Recovered/Resolved]

NARRATIVE: CASE EVENT DATE: 20170409
